FAERS Safety Report 16333720 (Version 1)
Quarter: 2019Q2

REPORT INFORMATION
  Report Type: Spontaneous
  Country: IT (occurrence: IT)
  Receive Date: 20190520
  Receipt Date: 20190520
  Transmission Date: 20190711
  Serious: Yes (Hospitalization)
  Sender: FDA-Public Use
  Company Number: IT-ASTRAZENECA-2019SE70271

PATIENT
  Age: 63 Year
  Sex: Male

DRUGS (6)
  1. GIASION [Concomitant]
     Active Substance: CEFDITOREN PIVOXIL
     Route: 065
  2. BIFRIZIDE [Concomitant]
     Active Substance: HYDROCHLOROTHIAZIDE
     Route: 065
  3. GIBITER [Suspect]
     Active Substance: BUDESONIDE\FORMOTEROL FUMARATE DIHYDRATE
     Indication: CHRONIC OBSTRUCTIVE PULMONARY DISEASE
     Dosage: 329UG/INHAL DAILY
     Route: 055
     Dates: start: 20190220
  4. CLOPIDOGREL [Suspect]
     Active Substance: CLOPIDOGREL BISULFATE
     Indication: ANTIPLATELET THERAPY
     Route: 048
     Dates: start: 20160101, end: 20190424
  5. LASIX [Concomitant]
     Active Substance: FUROSEMIDE
     Route: 065
  6. PANTORC [Concomitant]
     Active Substance: PANTOPRAZOLE SODIUM
     Route: 065

REACTIONS (2)
  - Headache [Recovered/Resolved]
  - Epistaxis [Recovered/Resolved]

NARRATIVE: CASE EVENT DATE: 20190424
